FAERS Safety Report 4775958-1 (Version None)
Quarter: 2005Q3

REPORT INFORMATION
  Report Type: 
  Country: None (occurrence: None)
  Receive Date: 20050922
  Receipt Date: 20050914
  Transmission Date: 20060218
  Serious: Yes (Hospitalization)
  Sender: FDA-Public Use
  Company Number: HCM-0106

PATIENT
  Age: 69 Year
  Sex: Male

DRUGS (3)
  1. TOPOTECAN [Suspect]
     Dosage: 1.1MG PER DAY
     Dates: start: 20050516, end: 20050519
  2. GRANISETRON  HCL [Concomitant]
     Dosage: 1AMP PER DAY
     Route: 042
     Dates: start: 20050516, end: 20050519
  3. OXYCODONE HCL [Concomitant]
     Dosage: 4TAB PER DAY
     Route: 048

REACTIONS (4)
  - ANOREXIA [None]
  - HYPOKALAEMIA [None]
  - PLATELET COUNT DECREASED [None]
  - WHITE BLOOD CELL COUNT DECREASED [None]
